FAERS Safety Report 5463106-4 (Version None)
Quarter: 2007Q3

REPORT INFORMATION
  Report Type: 
  Country: None (occurrence: None)
  Receive Date: 20070918
  Receipt Date: 20070918
  Transmission Date: 20080115
  Serious: Yes (Life-Threatening, Hospitalization, Disabling)
  Sender: FDA-Public Use
  Company Number: None

PATIENT
  Age: 74 Year
  Sex: Female
  Weight: 46.2669 kg

DRUGS (2)
  1. BONIVA [Suspect]
     Indication: BONE DENSITY DECREASED
     Dosage: ONCE A MONTH. MONTHLY PO
     Route: 048
     Dates: start: 20070518, end: 20070518
  2. BONIVA [Suspect]
     Indication: BONE DENSITY DECREASED
     Dosage: ONCE A MONTH. MONTHLY PO
     Route: 048
     Dates: start: 20070618, end: 20070618

REACTIONS (3)
  - MYOCARDIAL INFARCTION [None]
  - OESOPHAGEAL HAEMORRHAGE [None]
  - PHARMACEUTICAL PRODUCT COMPLAINT [None]
